FAERS Safety Report 10090442 (Version 1)
Quarter: 2014Q2

REPORT INFORMATION
  Report Type: Spontaneous
  Country: US (occurrence: US)
  Receive Date: 20140421
  Receipt Date: 20140421
  Transmission Date: 20141212
  Serious: Yes (Hospitalization)
  Sender: FDA-Public Use
  Company Number: US-JNJFOC-20140414118

PATIENT
  Age: 76 Year
  Sex: Male

DRUGS (6)
  1. IMBRUVICA [Suspect]
     Indication: MANTLE CELL LYMPHOMA
     Route: 048
     Dates: start: 2014, end: 20140409
  2. ASPIRIN [Concomitant]
     Route: 048
  3. FINASTERIDE [Concomitant]
     Route: 048
  4. LOVENOX [Concomitant]
     Dosage: 110,EVERY 12 HOURS
  5. LANTUS [Concomitant]
  6. FLOMAX [Concomitant]
     Route: 048

REACTIONS (4)
  - Heart rate increased [Recovering/Resolving]
  - Atrial fibrillation [Recovering/Resolving]
  - Pneumonia [Recovering/Resolving]
  - Pyrexia [Recovered/Resolved]
